FAERS Safety Report 7713596-9 (Version None)
Quarter: 2011Q3

REPORT INFORMATION
  Report Type: 
  Country: None (occurrence: None)
  Receive Date: 20110826
  Receipt Date: 20110819
  Transmission Date: 20111222
  Serious: Yes (Hospitalization, Other)
  Sender: FDA-Public Use
  Company Number: JP-CEPHALON-2011002610

PATIENT
  Sex: Male
  Weight: 69 kg

DRUGS (6)
  1. RITUXIMAB [Concomitant]
     Route: 042
     Dates: start: 20101214, end: 20110120
  2. BEZAFIBRATE [Concomitant]
  3. PIOGLITAZONE HYDROCHLORIDE [Concomitant]
     Dates: end: 20110129
  4. RITUXIMAB [Concomitant]
     Route: 042
     Dates: start: 20110120, end: 20110120
  5. BENDAMUSTINE HCL [Suspect]
     Route: 042
     Dates: start: 20110120, end: 20110121
  6. BENDAMUSTINE HCL [Suspect]
     Indication: B-CELL LYMPHOMA
     Route: 042
     Dates: start: 20101215, end: 20101216

REACTIONS (6)
  - PLATELET COUNT DECREASED [None]
  - NEUTROPHIL COUNT DECREASED [None]
  - WHITE BLOOD CELL COUNT DECREASED [None]
  - ANAEMIA [None]
  - CYTOMEGALOVIRUS INFECTION [None]
  - LYMPHOCYTE COUNT DECREASED [None]
